FAERS Safety Report 11381296 (Version 1)
Quarter: 2015Q3

REPORT INFORMATION
  Report Type: Spontaneous
  Country: IT (occurrence: IT)
  Receive Date: 20150814
  Receipt Date: 20150814
  Transmission Date: 20151125
  Serious: Yes (Hospitalization)
  Sender: FDA-Public Use
  Company Number: IT-BAYER-2015-396171

PATIENT
  Age: 95 Year
  Sex: Male

DRUGS (6)
  1. ENALAPRIL MALEATE. [Concomitant]
     Active Substance: ENALAPRIL MALEATE
     Dosage: 20 MG, QD
     Route: 048
     Dates: start: 20150722, end: 20150727
  2. CONGESCOR [Concomitant]
     Active Substance: BISOPROLOL
     Dosage: UNK
     Dates: start: 20150722, end: 20150727
  3. CIPROXIN [Suspect]
     Active Substance: CIPROFLOXACIN
     Indication: SEPSIS
     Dosage: 500 MG, BID
     Route: 048
     Dates: start: 20150724, end: 20150726
  4. PANTOPRAZOLE SODIUM. [Concomitant]
     Active Substance: PANTOPRAZOLE SODIUM
     Dosage: 20 MG, QD
     Route: 048
  5. TERAPROST [Concomitant]
     Indication: BENIGN PROSTATIC HYPERPLASIA
     Dosage: 5 MG, QD
     Route: 048
     Dates: start: 20140724, end: 20150724
  6. IVOR [Concomitant]
     Active Substance: BEMIPARIN SODIUM
     Dosage: 7500 IU, QD
     Route: 058
     Dates: start: 20150722, end: 20150727

REACTIONS (3)
  - Glomerular filtration rate decreased [Recovering/Resolving]
  - Blood creatinine increased [Recovering/Resolving]
  - Nephropathy toxic [Recovering/Resolving]

NARRATIVE: CASE EVENT DATE: 20150724
